FAERS Safety Report 12761138 (Version 1)
Quarter: 2016Q3

REPORT INFORMATION
  Report Type: Spontaneous
  Country: US (occurrence: US)
  Receive Date: 20160920
  Receipt Date: 20160920
  Transmission Date: 20161109
  Serious: No
  Sender: FDA-Public Use
  Company Number: US-009507513-1609USA008273

PATIENT
  Age: 28 Year
  Sex: Female

DRUGS (1)
  1. INTRON A [Suspect]
     Active Substance: INTERFERON ALFA-2B
     Indication: BONE GIANT CELL TUMOUR
     Dosage: 3 MILLION UNITS PER DAY

REACTIONS (2)
  - Product use issue [Unknown]
  - Drug ineffective [Unknown]
